FAERS Safety Report 4638029-0 (Version None)
Quarter: 2005Q2

REPORT INFORMATION
  Report Type: 
  Country: None (occurrence: None)
  Receive Date: 20050415
  Receipt Date: 20050406
  Transmission Date: 20051028
  Serious: Yes (Hospitalization)
  Sender: FDA-Public Use
  Company Number: 2005-04-0156

PATIENT
  Age: 22 Year
  Sex: Female

DRUGS (5)
  1. AERIUS (DESLORATADINE) TABLETS [Suspect]
     Dosage: ORAL
     Route: 048
  2. ATARAX [Suspect]
  3. TERCIAN [Suspect]
  4. VALIUM [Suspect]
  5. ZYPREXA [Suspect]

REACTIONS (2)
  - DRUG ABUSER [None]
  - DRUG DEPENDENCE [None]
